FAERS Safety Report 23189244 (Version 1)
Quarter: 2023Q4

REPORT INFORMATION
  Report Type: Spontaneous
  Country: US (occurrence: US)
  Receive Date: 20231115
  Receipt Date: 20231115
  Transmission Date: 20240109
  Serious: No
  Sender: FDA-Public Use
  Company Number: US-drreddys-SPO/USA/23/0181075

PATIENT
  Age: 24 Year
  Sex: Female

DRUGS (3)
  1. ACCUTANE [Suspect]
     Active Substance: ISOTRETINOIN
     Indication: Acne
     Dosage: RMA ISSUE DATE: 27 MARCH 2023 10:23:28 AM, 07 JUNE 2023 09:58:38 AM, 06 JULY 2023 11:33:54 AM, 02 AU
  2. ACCUTANE [Suspect]
     Active Substance: ISOTRETINOIN
     Dosage: RMA ISSUE DATE: 27 MARCH 2023 10:27:04 AM
  3. ACCUTANE [Suspect]
     Active Substance: ISOTRETINOIN
     Dosage: RMA ISSUE DATE: 07 JUNE 2023 09:58:38 AM, 06 JULY 2023 11:33:54 AM, 02 AUGUST 2023 10:34:16 AM

REACTIONS (1)
  - Adverse drug reaction [Unknown]
